FAERS Safety Report 16981240 (Version 2)
Quarter: 2020Q2

REPORT INFORMATION
  Report Type: Spontaneous
  Country: US (occurrence: US)
  Receive Date: 20191031
  Receipt Date: 20200527
  Transmission Date: 20200713
  Serious: Yes (Hospitalization, Other)
  Sender: FDA-Public Use
  Company Number: US-ASTRAZENECA-2019SF53079

PATIENT
  Age: 19150 Day
  Sex: Male

DRUGS (43)
  1. GABAPENTIN. [Concomitant]
     Active Substance: GABAPENTIN
  2. METFORMIN [Concomitant]
     Active Substance: METFORMIN HYDROCHLORIDE
  3. OXYCODONE/APAP [Concomitant]
     Active Substance: ACETAMINOPHEN\OXYCODONE HYDROCHLORIDE
  4. AMOXICILLIN/CLAVULANATE [Concomitant]
     Active Substance: AMOXICILLIN\CLAVULANATE POTASSIUM
  5. BACLOFEN. [Concomitant]
     Active Substance: BACLOFEN
  6. CHANTIX [Concomitant]
     Active Substance: VARENICLINE TARTRATE
  7. CETRIZINE [Concomitant]
     Active Substance: CETIRIZINE HYDROCHLORIDE
  8. REMERON [Concomitant]
     Active Substance: MIRTAZAPINE
  9. HYDROCODONE/ACETAMINOPHEN [Concomitant]
     Active Substance: ACETAMINOPHEN\HYDROCODONE
  10. POLYETHYLENE GLYCOL [Concomitant]
     Active Substance: POLYETHYLENE GLYCOLS
  11. VENTOLIN [Concomitant]
     Active Substance: ALBUTEROL SULFATE
  12. IBUPROFEN. [Concomitant]
     Active Substance: IBUPROFEN
  13. ICAR C [Concomitant]
  14. FE C PLUS [Concomitant]
  15. LOSARTAN AND HYDROCHLOROTHIAZIDE [Concomitant]
     Active Substance: HYDROCHLOROTHIAZIDE\LOSARTAN POTASSIUM
  16. CEPHALEXIN. [Concomitant]
     Active Substance: CEPHALEXIN
  17. CEFPROZIL. [Concomitant]
     Active Substance: CEFPROZIL
  18. GABAPENTIN. [Concomitant]
     Active Substance: GABAPENTIN
  19. CENTRUM [Concomitant]
     Active Substance: VITAMINS
  20. FLUCONAZOLE. [Concomitant]
     Active Substance: FLUCONAZOLE
  21. JANUVIA [Concomitant]
     Active Substance: SITAGLIPTIN PHOSPHATE
  22. CIPROFLOXACIN. [Concomitant]
     Active Substance: CIPROFLOXACIN
  23. ESCITALOPRAM [Concomitant]
     Active Substance: ESCITALOPRAM OXALATE
  24. DIAZEPAM. [Concomitant]
     Active Substance: DIAZEPAM
  25. FARXIGA [Suspect]
     Active Substance: DAPAGLIFLOZIN PROPANEDIOL
     Indication: TYPE 2 DIABETES MELLITUS
     Route: 048
     Dates: start: 20170403
  26. FARXIGA [Suspect]
     Active Substance: DAPAGLIFLOZIN PROPANEDIOL
     Indication: WEIGHT DECREASED
     Route: 048
     Dates: start: 20170403
  27. FARXIGA [Suspect]
     Active Substance: DAPAGLIFLOZIN PROPANEDIOL
     Indication: BLOOD PRESSURE DECREASED
     Route: 048
     Dates: start: 20170403
  28. ROSUVASTATIN. [Concomitant]
     Active Substance: ROSUVASTATIN
  29. SULFAMETHOX/TRIMETHOPRIM [Concomitant]
  30. AMOXICILLIN. [Concomitant]
     Active Substance: AMOXICILLIN
  31. OMEPRAZOLE. [Concomitant]
     Active Substance: OMEPRAZOLE
  32. ACARBOSE. [Concomitant]
     Active Substance: ACARBOSE
  33. DELSYM [Concomitant]
     Active Substance: DEXTROMETHORPHAN
  34. CEFTRIAXONE. [Concomitant]
     Active Substance: CEFTRIAXONE
  35. DECADRON [Concomitant]
     Active Substance: DEXAMETHASONE
  36. TORADOL [Concomitant]
     Active Substance: KETOROLAC TROMETHAMINE
  37. LEVOFLOXACIN. [Concomitant]
     Active Substance: LEVOFLOXACIN
  38. OXYBUTYNIN. [Concomitant]
     Active Substance: OXYBUTYNIN CHLORIDE
  39. METHOCARBAMOL. [Concomitant]
     Active Substance: METHOCARBAMOL
  40. COLLAGENASE SANTYL [Concomitant]
     Active Substance: COLLAGENASE CLOSTRIDIUM HISTOLYTICUM
  41. NITROFURANTOIN. [Concomitant]
     Active Substance: NITROFURANTOIN
  42. KENALOG [Concomitant]
     Active Substance: TRIAMCINOLONE ACETONIDE
  43. DITROPAN [Concomitant]
     Active Substance: OXYBUTYNIN CHLORIDE

REACTIONS (5)
  - Necrotising soft tissue infection [Unknown]
  - Urinary tract infection [Unknown]
  - Septic shock [Unknown]
  - Hip disarticulation [Unknown]
  - Fournier^s gangrene [Unknown]

NARRATIVE: CASE EVENT DATE: 20180313
